FAERS Safety Report 15114304 (Version 1)
Quarter: 2018Q3

REPORT INFORMATION
  Report Type: Spontaneous
  Country: GB (occurrence: GB)
  Receive Date: 20180706
  Receipt Date: 20180706
  Transmission Date: 20181010
  Serious: Yes (Disabling, Other)
  Sender: FDA-Public Use
  Company Number: GB-BAYER-2018-124559

PATIENT
  Age: 30 Year
  Sex: Male

DRUGS (3)
  1. CIPROFLOXACIN. [Suspect]
     Active Substance: CIPROFLOXACIN
     Indication: PROSTATITIS
     Dosage: 500 MG, QD
  2. IBUPROFEN. [Concomitant]
     Active Substance: IBUPROFEN
  3. CIPROFLOXACIN. [Suspect]
     Active Substance: CIPROFLOXACIN
     Indication: PROSTATITIS
     Dosage: 500 MG, BID
     Dates: start: 200011

REACTIONS (24)
  - Multi-vitamin deficiency [None]
  - Neuropathy peripheral [None]
  - Coordination abnormal [None]
  - Gait disturbance [None]
  - Arthralgia [None]
  - Jaundice [None]
  - Panic attack [None]
  - Food intolerance [None]
  - Blood glucose fluctuation [None]
  - Oedema [None]
  - Eye disorder [None]
  - Disturbance in attention [None]
  - Tendon rupture [None]
  - Headache [None]
  - Reactive gastropathy [None]
  - Erosive duodenitis [None]
  - Hiatus hernia [None]
  - Thyroid disorder [None]
  - Osteoporosis [None]
  - Colitis ulcerative [None]
  - Duodenal ulcer [None]
  - Weight decreased [None]
  - Tinnitus [None]
  - Visual impairment [None]

NARRATIVE: CASE EVENT DATE: 2000
